FAERS Safety Report 5982933-8 (Version None)
Quarter: 2008Q4

REPORT INFORMATION
  Report Type: 
  Country: None (occurrence: None)
  Receive Date: 20081205
  Receipt Date: 20081205
  Transmission Date: 20090506
  Serious: Yes (Other)
  Sender: FDA-Public Use
  Company Number: None

PATIENT
  Age: 21 Year
  Sex: Female
  Weight: 53.0709 kg

DRUGS (1)
  1. FLUOXETINE [Suspect]
     Indication: DEPRESSION
     Dosage: 20 MG ONCE A DAY PO
     Route: 048
     Dates: start: 20080801, end: 20081202

REACTIONS (4)
  - ABNORMAL DREAMS [None]
  - DRUG DOSE OMISSION [None]
  - NIGHTMARE [None]
  - POOR QUALITY SLEEP [None]
